FAERS Safety Report 10923843 (Version 1)
Quarter: 2015Q1

REPORT INFORMATION
  Report Type: Spontaneous
  Country: US (occurrence: None)
  Receive Date: 20150316
  Receipt Date: 20150316
  Transmission Date: 20150721
  Serious: Yes (Death)
  Sender: FDA-Public Use
  Company Number: None

PATIENT
  Age: 68 Year
  Sex: Male
  Weight: 71.22 kg

DRUGS (1)
  1. REVLIMID [Suspect]
     Active Substance: LENALIDOMIDE
     Indication: PLASMA CELL MYELOMA
     Dosage: 1
     Route: 048

REACTIONS (6)
  - Cough [None]
  - Dialysis [None]
  - Renal disorder [None]
  - Liver disorder [None]
  - Cardiac disorder [None]
  - Cardiac operation [None]

NARRATIVE: CASE EVENT DATE: 20150107
